FAERS Safety Report 4875162-2 (Version None)
Quarter: 2006Q1

REPORT INFORMATION
  Report Type: 
  Country: None (occurrence: None)
  Receive Date: 20060104
  Receipt Date: 20051222
  Transmission Date: 20060701
  Serious: Yes (Other)
  Sender: FDA-Public Use
  Company Number: 2005080255

PATIENT
  Age: 77 Year
  Sex: Female

DRUGS (3)
  1. BEXTRA [Suspect]
     Indication: ARTHRITIS
     Dosage: (1-2/DAY)
     Dates: start: 20040101
  2. ASPIRIN [Concomitant]
  3. LEVOXYL [Concomitant]

REACTIONS (1)
  - PRURITUS [None]
